FAERS Safety Report 16254831 (Version 1)
Quarter: 2019Q2

REPORT INFORMATION
  Report Type: Spontaneous
  Country: US (occurrence: US)
  Receive Date: 20190429
  Receipt Date: 20190429
  Transmission Date: 20190711
  Serious: Yes (Disabling)
  Sender: FDA-Public Use
  Company Number: None

PATIENT
  Age: 57 Year
  Sex: Female
  Weight: 44.1 kg

DRUGS (1)
  1. LEVAQUIN [Suspect]
     Active Substance: LEVOFLOXACIN
     Indication: CLOSTRIDIUM DIFFICILE INFECTION
     Route: 048
     Dates: start: 20170208, end: 20170215

REACTIONS (13)
  - Diarrhoea [None]
  - Confusional state [None]
  - Taste disorder [None]
  - Fatigue [None]
  - Paraesthesia [None]
  - Vertigo [None]
  - Nerve injury [None]
  - Limb discomfort [None]
  - Neuropathy peripheral [None]
  - Loss of personal independence in daily activities [None]
  - Gait disturbance [None]
  - Dizziness [None]
  - Hypoaesthesia [None]

NARRATIVE: CASE EVENT DATE: 20170209
